FAERS Safety Report 4719405-4 (Version None)
Quarter: 2005Q3

REPORT INFORMATION
  Report Type: 
  Country: None (occurrence: None)
  Receive Date: 20050721
  Receipt Date: 20040812
  Transmission Date: 20060218
  Serious: No
  Sender: FDA-Public Use
  Company Number: US-BRISTOL-MYERS SQUIBB COMPANY-12669412

PATIENT
  Age: 58 Year
  Sex: Female
  Weight: 51 kg

DRUGS (4)
  1. ESTRADIOL [Suspect]
     Indication: HOT FLUSH
     Route: 048
     Dates: start: 20040301
  2. PROMETRIUM [Concomitant]
  3. LESCOL [Concomitant]
  4. VITAMINS [Concomitant]

REACTIONS (1)
  - HYPERTHYROIDISM [None]
